FAERS Safety Report 6523107-1 (Version None)
Quarter: 2009Q4

REPORT INFORMATION
  Report Type: 
  Country: None (occurrence: None)
  Receive Date: 20091222
  Receipt Date: 20091210
  Transmission Date: 20100525
  Serious: Yes (Other)
  Sender: FDA-Public Use
  Company Number: AE-2009-315

PATIENT
  Age: 68 Year
  Sex: Male
  Weight: 78 kg

DRUGS (10)
  1. FUROSEMIDE [Suspect]
     Dosage: 240MG, QD
  2. DIGOXIN [Suspect]
     Dosage: 0.125MG,QD
  3. ACIPIMOX [Suspect]
     Dosage: 250MG, BID
  4. AMIODARONE HCL [Suspect]
     Dosage: 200MG, QD
  5. ASPIRIN [Suspect]
     Dosage: 75MG, QD
  6. BISOPROLOL FUMARATE [Suspect]
     Dosage: 7.5MG, QD
  7. EZETIMIBE (EZETROL) [Suspect]
     Dosage: 10MG, QD, ORAL
     Route: 048
  8. FUROSEMIDE [Suspect]
     Dosage: 160MG, QD
  9. LANSOPRAZOLE [Suspect]
     Dosage: 30MG, QD
  10. PERINDOPRIL ERBUMINE [Suspect]
     Dosage: 2MG, QD

REACTIONS (12)
  - ATRIAL FIBRILLATION [None]
  - CARDIAC MURMUR [None]
  - DIPLOPIA [None]
  - DIZZINESS [None]
  - DYSPNOEA [None]
  - FATIGUE [None]
  - FEELING ABNORMAL [None]
  - OEDEMA PERIPHERAL [None]
  - PARAESTHESIA [None]
  - VENOUS PRESSURE JUGULAR INCREASED [None]
  - VENTRICULAR DYSFUNCTION [None]
  - VENTRICULAR TACHYCARDIA [None]
